FAERS Safety Report 20843539 (Version 1)
Quarter: 2022Q2

REPORT INFORMATION
  Report Type: Spontaneous
  Country: BG (occurrence: BG)
  Receive Date: 20220518
  Receipt Date: 20220518
  Transmission Date: 20220721
  Serious: Yes (Other)
  Sender: FDA-Public Use
  Company Number: BG-NOVARTISPH-NVSC2022BG112554

PATIENT
  Age: 67 Year
  Sex: Male

DRUGS (4)
  1. CARBOPLATIN [Suspect]
     Active Substance: CARBOPLATIN
     Indication: Product used for unknown indication
     Dosage: UNK
     Route: 065
     Dates: start: 202004, end: 202007
  2. PEMBROLIZUMAB [Suspect]
     Active Substance: PEMBROLIZUMAB
     Indication: Product used for unknown indication
     Dosage: 200 MG
     Route: 065
     Dates: start: 202004, end: 202007
  3. PEMBROLIZUMAB [Suspect]
     Active Substance: PEMBROLIZUMAB
     Dosage: UNK
     Route: 065
     Dates: start: 202109, end: 202109
  4. PACLITAXEL [Suspect]
     Active Substance: PACLITAXEL
     Indication: Product used for unknown indication
     Dosage: 175 MG/M2
     Route: 065
     Dates: start: 202004, end: 202007

REACTIONS (2)
  - Type 1 diabetes mellitus [Recovering/Resolving]
  - Therapy partial responder [Not Recovered/Not Resolved]

NARRATIVE: CASE EVENT DATE: 20210401
